FAERS Safety Report 9516445 (Version 1)
Quarter: 2013Q1

REPORT INFORMATION
  Report Type: Spontaneous
  Country: US (occurrence: None)
  Receive Date: 20130305
  Receipt Date: 20130305
  Transmission Date: 20140127
  Serious: Yes (Other)
  Sender: FDA-Public Use
  Company Number: 163-21880-12011950

PATIENT
  Age: 86 Year
  Sex: Male

DRUGS (1)
  1. REVLIMID [Suspect]
     Indication: PLASMA CELL MYELOMA
     Dosage: 25 MG,  DAILY X 21 DAYS,  PO
     Route: 048
     Dates: start: 201103

REACTIONS (1)
  - Hip fracture [None]
